FAERS Safety Report 8901840 (Version 1)
Quarter: 2012Q4

REPORT INFORMATION
  Report Type: Spontaneous
  Country: US (occurrence: None)
  Receive Date: 20121107
  Receipt Date: 20121107
  Transmission Date: 20130627
  Serious: Yes (Other)
  Sender: FDA-Public Use
  Company Number: FK201203291

PATIENT
  Age: 50 Year
  Sex: Female

DRUGS (4)
  1. FLUOROURACIL [Suspect]
     Indication: COLON CANCER
     Route: 040
  2. FLUOROURACIL [Suspect]
     Indication: COLON CANCER
     Route: 041
  3. FOLINIC ACID [Concomitant]
  4. OXALIPLATIN (OXALIPLATIN ) [Concomitant]

REACTIONS (16)
  - Leukoencephalopathy [None]
  - Alopecia [None]
  - Mucosal inflammation [None]
  - Palmar-plantar erythrodysaesthesia syndrome [None]
  - Febrile neutropenia [None]
  - Dysphagia [None]
  - Photophobia [None]
  - Gait disturbance [None]
  - Asthenia [None]
  - Dysarthria [None]
  - Dysphonia [None]
  - Ataxia [None]
  - Cerebellar syndrome [None]
  - Cerebellar syndrome [None]
  - Memory impairment [None]
  - Aphasia [None]
